FAERS Safety Report 6836775-1 (Version None)
Quarter: 2010Q3

REPORT INFORMATION
  Report Type: 
  Country: None (occurrence: None)
  Receive Date: 20100708
  Receipt Date: 20100628
  Transmission Date: 20110219
  Serious: Yes (Hospitalization)
  Sender: FDA-Public Use
  Company Number: 632075

PATIENT
  Age: 44 Year
  Sex: Male

DRUGS (2)
  1. BLEOMYCIN SULFATE [Suspect]
     Indication: SEMINOMA
     Dosage: 30 IU INTERNATIONAL UNITS
     Dates: end: 20061229
  2. ETOPOSIDE [Concomitant]

REACTIONS (2)
  - EOSINOPHILIC PNEUMONIA [None]
  - PULMONARY TOXICITY [None]
